FAERS Safety Report 7598286-8 (Version None)
Quarter: 2011Q3

REPORT INFORMATION
  Report Type: 
  Country: None (occurrence: None)
  Receive Date: 20110708
  Receipt Date: 20110628
  Transmission Date: 20111222
  Serious: Yes (Hospitalization)
  Sender: FDA-Public Use
  Company Number: KR-ABBOTT-11P-090-0835182-00

PATIENT
  Sex: Female

DRUGS (9)
  1. TRITACE [Concomitant]
     Route: 048
  2. EPOKINE [Concomitant]
     Route: 058
  3. DIGOXIN [Concomitant]
     Indication: PRODUCT USED FOR UNKNOWN INDICATION
     Route: 042
  4. ZEMPLAR [Suspect]
     Indication: BLOOD CALCIUM ABNORMAL
     Dosage: THREE TIMES A WEEK WHEN DIALYSIS
     Dates: start: 20091016
  5. EPOKINE [Concomitant]
     Route: 058
  6. TRITACE [Concomitant]
     Indication: PRODUCT USED FOR UNKNOWN INDICATION
     Route: 048
  7. ZEMPLAR [Suspect]
  8. EPOKINE [Concomitant]
     Indication: PRODUCT USED FOR UNKNOWN INDICATION
     Route: 058
  9. DIGOXIN [Concomitant]

REACTIONS (1)
  - VAGINAL HAEMORRHAGE [None]
